FAERS Safety Report 8841832 (Version 3)
Quarter: 2013Q1

REPORT INFORMATION
  Report Type: Spontaneous
  Country: US (occurrence: US)
  Receive Date: 20121016
  Receipt Date: 20130311
  Transmission Date: 20140127
  Serious: Yes (Other)
  Sender: FDA-Public Use
  Company Number: US-PAR PHARMACEUTICAL, INC-2012SCPR004652

PATIENT
  Sex: 0

DRUGS (19)
  1. TRAMADOL AND ACETAMINOPHEN [Suspect]
     Indication: ARTHRITIS
     Dosage: 2 TABLETS THREE TIMES A DAY
     Route: 048
  2. REVATIO [Suspect]
     Indication: PULMONARY ARTERIAL HYPERTENSION
     Dosage: 20 MG, TID
     Route: 065
  3. TRACLEER [Suspect]
     Indication: PULMONARY ARTERIAL HYPERTENSION
     Dosage: 125 MG, BID
     Route: 065
  4. DILTIAZEM ER [Suspect]
     Indication: HYPERTENSION
     Dosage: 180 MG, QD
     Route: 048
  5. METOPROLOL TARTRATE [Suspect]
     Indication: HEART RATE DECREASED
     Dosage: 25 MG, BID
     Route: 065
  6. ALLOPURINOL [Suspect]
     Indication: GOUT
     Dosage: HALF TABLET OF 300 MG DAILY
     Route: 048
  7. CITALOPRAM HYDROBROMIDE [Suspect]
     Indication: DEPRESSION
     Dosage: 2 TABLETS OF 20 MG DAILY
     Route: 048
  8. COUMADIN                           /00014802/ [Suspect]
     Indication: THROMBOSIS
     Dosage: UNK, UNKNOWN
     Route: 065
  9. COUMADIN                           /00014802/ [Suspect]
     Dosage: 15 MG DAILY EXCEPT ON THURSDAY, 20 MG
     Route: 065
  10. METOLAZONE [Suspect]
     Indication: FLUID RETENTION
     Dosage: 2.5 MG, QD
     Route: 065
  11. PEPCID                             /00706001/ [Suspect]
     Indication: GASTROOESOPHAGEAL REFLUX DISEASE
     Dosage: 20 MG, UNKNOWN
     Route: 065
  12. KLOR-CON [Suspect]
     Indication: BLOOD POTASSIUM DECREASED
     Dosage: 20 MEQ, QD
     Route: 065
  13. DIGOXIN [Suspect]
     Indication: PRODUCT USED FOR UNKNOWN INDICATION
     Dosage: 0.25 MG, QD
     Route: 065
  14. UNSPECIFIED CREAM [Suspect]
     Indication: PSORIASIS
     Dosage: UNK, UNKNOWN
     Route: 065
  15. IRON [Suspect]
     Indication: ANAEMIA
     Dosage: UNK, UNKNOWN
     Route: 048
  16. OMEGA 3 [Suspect]
     Indication: PRODUCT USED FOR UNKNOWN INDICATION
     Dosage: UNK, UNKNOWN
     Route: 065
  17. CALCIUM [Suspect]
     Indication: PRODUCT USED FOR UNKNOWN INDICATION
     Dosage: UNK, UNKNOWN
     Route: 065
  18. MAGNESIUM [Suspect]
     Indication: PRODUCT USED FOR UNKNOWN INDICATION
     Dosage: UNK, UNKNOWN
     Route: 065
  19. ZINC [Suspect]
     Indication: PRODUCT USED FOR UNKNOWN INDICATION
     Dosage: UNK, UNKNOWN
     Route: 065

REACTIONS (8)
  - Generalised oedema [Not Recovered/Not Resolved]
  - Local swelling [Not Recovered/Not Resolved]
  - Urticaria [Not Recovered/Not Resolved]
  - Restlessness [Not Recovered/Not Resolved]
  - Feeling abnormal [Not Recovered/Not Resolved]
  - Insomnia [Not Recovered/Not Resolved]
  - Somnolence [Not Recovered/Not Resolved]
  - Pruritus [Not Recovered/Not Resolved]
